FAERS Safety Report 8486609-7 (Version None)
Quarter: 2012Q3

REPORT INFORMATION
  Report Type: 
  Country: None (occurrence: None)
  Receive Date: 20120703
  Receipt Date: 20120621
  Transmission Date: 20120928
  Serious: Yes (Hospitalization)
  Sender: FDA-Public Use
  Company Number: US-ELI_LILLY_AND_COMPANY-US201206008674

PATIENT
  Sex: Male

DRUGS (8)
  1. THORAZINE [Concomitant]
  2. ZYPREXA RELPREVV [Suspect]
     Indication: SCHIZOPHRENIA, PARANOID TYPE
     Dosage: 210 MG, UNKNOWN
  3. ZYPREXA [Suspect]
     Dosage: 20 MG, QD
  4. ZYPREXA [Suspect]
     Indication: SCHIZOPHRENIA, PARANOID TYPE
     Dosage: 2.5 MG, QD
  5. ZYPREXA RELPREVV [Suspect]
     Dosage: 300 MG, UNKNOWN
     Dates: start: 20120410
  6. ZYPREXA RELPREVV [Suspect]
     Dosage: 405 MG, UNKNOWN
     Dates: start: 20120504
  7. KLONOPIN [Concomitant]
  8. ZYPREXA RELPREVV [Suspect]
     Dosage: 405 MG, 2/M

REACTIONS (5)
  - DRUG INEFFECTIVE [None]
  - MYDRIASIS [None]
  - OVERDOSE [None]
  - HOSPITALISATION [None]
  - HALLUCINATION [None]
